FAERS Safety Report 5428442-6 (Version None)
Quarter: 2007Q3

REPORT INFORMATION
  Report Type: 
  Country: None (occurrence: None)
  Receive Date: 20070731
  Receipt Date: 20070430
  Transmission Date: 20080115
  Serious: No
  Sender: FDA-Public Use
  Company Number: US200705000223

PATIENT
  Age: 64 Year
  Sex: Female

DRUGS (7)
  1. BYETTA [Suspect]
     Indication: TYPE 2 DIABETES MELLITUS
     Dosage: 10 UG, 2/D, SUBCUTANEOUS, 5 UG, 2/D, SUBCUTANEOUS
     Route: 058
     Dates: start: 20070301, end: 20070301
  2. BYETTA [Suspect]
     Indication: TYPE 2 DIABETES MELLITUS
     Dosage: 10 UG, 2/D, SUBCUTANEOUS, 5 UG, 2/D, SUBCUTANEOUS
     Route: 058
     Dates: start: 20061101
  3. BYETTA [Suspect]
     Indication: TYPE 2 DIABETES MELLITUS
     Dosage: 10 UG, 2/D, SUBCUTANEOUS, 5 UG, 2/D, SUBCUTANEOUS
     Route: 058
     Dates: start: 20070401
  4. EXENATIDE UNK STRENGTH PEN, DISPOSABLE DEVICE (EXENATIDE PEN (UNKNOWN [Concomitant]
  5. EXENATIDE 10MCG PEN, DISPOSABLE DEVICE EXENATIDE PEN (10MCG)) PEN,DISP [Concomitant]
  6. GLUCOVANCE [Concomitant]
  7. DARVOCET-N (PROPOXYPHENE NAPSYLATE UNKNOWN FORMULATION) [Concomitant]

REACTIONS (3)
  - HEADACHE [None]
  - MYALGIA [None]
  - NAUSEA [None]
